FAERS Safety Report 7198744-4 (Version None)
Quarter: 2010Q4

REPORT INFORMATION
  Report Type: 
  Country: None (occurrence: None)
  Receive Date: 20101227
  Receipt Date: 20100910
  Transmission Date: 20110411
  Serious: No
  Sender: FDA-Public Use
  Company Number: US-ABBOTT-10P-163-0671090-00

PATIENT
  Sex: Male

DRUGS (3)
  1. LUPRON DEPOT [Suspect]
     Indication: PROSTATE CANCER
     Dates: start: 20100909
  2. VESICARE [Concomitant]
     Indication: URINARY TRACT OBSTRUCTION
  3. AVODART [Concomitant]
     Indication: URINARY TRACT OBSTRUCTION

REACTIONS (1)
  - PAIN IN EXTREMITY [None]
